FAERS Safety Report 6696104-3 (Version None)
Quarter: 2010Q2

REPORT INFORMATION
  Report Type: 
  Country: None (occurrence: None)
  Receive Date: 20100426
  Receipt Date: 20100419
  Transmission Date: 20101027
  Serious: Yes (Hospitalization, Other)
  Sender: FDA-Public Use
  Company Number: US-SANOFI-AVENTIS-2010SA014345

PATIENT
  Age: 79 Year
  Sex: Female
  Weight: 72.27 kg

DRUGS (6)
  1. MULTAQ [Suspect]
     Indication: ATRIAL FIBRILLATION
     Route: 048
     Dates: start: 20100218, end: 20100406
  2. DYAZIDE [Concomitant]
  3. LIPITOR [Concomitant]
     Dates: start: 20000101
  4. ATENOLOL [Concomitant]
     Dates: start: 20010101
  5. COUMADIN [Concomitant]
  6. AVAPRO [Concomitant]
     Dates: start: 20080101

REACTIONS (6)
  - ATRIAL FIBRILLATION [None]
  - BRAIN NATRIURETIC PEPTIDE INCREASED [None]
  - CARDIAC FAILURE CONGESTIVE [None]
  - DYSPNOEA [None]
  - MUSCLE SPASMS [None]
  - OEDEMA PERIPHERAL [None]
